FAERS Safety Report 6587580-5 (Version None)
Quarter: 2010Q1

REPORT INFORMATION
  Report Type: 
  Country: None (occurrence: None)
  Receive Date: 20100218
  Receipt Date: 20100209
  Transmission Date: 20100710
  Serious: Yes (Other)
  Sender: FDA-Public Use
  Company Number: US-BIOGENIDEC-2010BI004625

PATIENT
  Age: 39 Year
  Sex: Female

DRUGS (1)
  1. AVONEX [Suspect]
     Indication: MULTIPLE SCLEROSIS
     Route: 030

REACTIONS (5)
  - HAEMORRHAGE [None]
  - HEPATIC STEATOSIS [None]
  - MULTIPLE SCLEROSIS RELAPSE [None]
  - NEPHROLITHIASIS [None]
  - SQUAMOUS CELL CARCINOMA [None]
